FAERS Safety Report 25475952 (Version 2)
Quarter: 2025Q3

REPORT INFORMATION
  Report Type: Spontaneous
  Country: JP (occurrence: JP)
  Receive Date: 20250625
  Receipt Date: 20250714
  Transmission Date: 20251021
  Serious: Yes (Hospitalization, Other)
  Sender: GLAXOSMITHKLINE
  Company Number: JP-GSKJP-JP2025JPN075982AA

PATIENT
  Age: 95 Year

DRUGS (1)
  1. DAPRODUSTAT [Suspect]
     Active Substance: DAPRODUSTAT
     Indication: Nephrogenic anaemia

REACTIONS (4)
  - Renal impairment [Unknown]
  - Myelodysplastic syndrome [Unknown]
  - Hospitalisation [Unknown]
  - Drug ineffective [Unknown]
